FAERS Safety Report 6408139-6 (Version None)
Quarter: 2009Q4

REPORT INFORMATION
  Report Type: 
  Country: None (occurrence: None)
  Receive Date: 20091021
  Receipt Date: 20091015
  Transmission Date: 20100525
  Serious: Yes (Life-Threatening, Hospitalization, Other)
  Sender: FDA-Public Use
  Company Number: FR-BAYER-200935833GPV

PATIENT
  Age: 47 Year
  Sex: Male

DRUGS (1)
  1. CIFLOX [Suspect]
     Indication: PROSTATITIS
     Route: 048
     Dates: start: 20091001

REACTIONS (2)
  - COMA [None]
  - EPILEPSY [None]
